FAERS Safety Report 8221457-4 (Version None)
Quarter: 2012Q1

REPORT INFORMATION
  Report Type: 
  Country: None (occurrence: None)
  Receive Date: 20120320
  Receipt Date: 20120316
  Transmission Date: 20120608
  Serious: Yes (Hospitalization, Other)
  Sender: FDA-Public Use
  Company Number: DE-ABBOTT-11P-062-0855147-00

PATIENT
  Sex: Female

DRUGS (5)
  1. HUMIRA [Suspect]
     Dates: start: 20111201
  2. PREDNISOLONE [Concomitant]
     Indication: PRODUCT USED FOR UNKNOWN INDICATION
  3. LEVOTHYROXINE SODIUM [Concomitant]
     Indication: PRODUCT USED FOR UNKNOWN INDICATION
  4. HUMIRA [Suspect]
     Indication: RHEUMATOID ARTHRITIS
     Route: 058
     Dates: start: 20110316, end: 20110818
  5. METHOTREXATE [Concomitant]
     Indication: RHEUMATOID ARTHRITIS
     Dates: start: 20110101

REACTIONS (10)
  - GALLBLADDER EMPYEMA [None]
  - NERVE INJURY [None]
  - PAIN [None]
  - PYREXIA [None]
  - BILIARY COLIC [None]
  - CHOLECYSTITIS ACUTE [None]
  - JOINT RANGE OF MOTION DECREASED [None]
  - CHOLELITHIASIS [None]
  - GALLBLADDER ABSCESS [None]
  - CHILLS [None]
